FAERS Safety Report 20064462 (Version 1)
Quarter: 2021Q4

REPORT INFORMATION
  Report Type: Spontaneous
  Country: US (occurrence: None)
  Receive Date: 20211112
  Receipt Date: 20211112
  Transmission Date: 20220303
  Serious: Yes (Life-Threatening)
  Sender: FDA-Public Use
  Company Number: None

PATIENT
  Age: 23 Year
  Sex: Male
  Weight: 104.4 kg

DRUGS (2)
  1. AMOXICILLIN [Suspect]
     Active Substance: AMOXICILLIN
  2. DEVICE [Concomitant]
     Active Substance: DEVICE

REACTIONS (2)
  - Anaphylactic shock [None]
  - Wrong product administered [None]

NARRATIVE: CASE EVENT DATE: 20211112
